FAERS Safety Report 25452814 (Version 2)
Quarter: 2025Q2

REPORT INFORMATION
  Report Type: Spontaneous
  Country: GB (occurrence: GB)
  Receive Date: 20250618
  Receipt Date: 20250625
  Transmission Date: 20250716
  Serious: Yes (Other)
  Sender: PFIZER
  Company Number: GB-MHRA-TPP45089024C17722716YC1749813000805

PATIENT
  Age: 88 Year
  Sex: Female
  Weight: 74 kg

DRUGS (8)
  1. ESTRADIOL [Suspect]
     Active Substance: ESTRADIOL
     Route: 067
     Dates: start: 20250515, end: 20250520
  2. CANDESARTAN [Concomitant]
     Active Substance: CANDESARTAN
     Indication: Hypertension
     Dosage: 1 DF, 1X/DAY ( (ONE TO BE TAKEN EACH DAY FOR BP)
     Route: 048
     Dates: start: 20230309
  3. ASPIRIN [Concomitant]
     Active Substance: ASPIRIN
     Dosage: 1 DF, 1X/DAY (ONE TO BE TAKEN EACH DAY - LIFELONG - LETTER 3)
     Route: 048
     Dates: start: 20231013
  4. DOXAZOSIN [Concomitant]
     Active Substance: DOXAZOSIN MESYLATE
     Indication: Hypertension
     Dosage: 1 DF, 1X/DAY (ONE TO BE TAKEN EACH DAY FOR BP)
     Route: 048
     Dates: start: 20231013
  5. LACIDIPINE [Concomitant]
     Active Substance: LACIDIPINE
     Indication: Hypertension
     Dosage: 1 DF, 1X/DAY (ONE TO BE TAKEN EACH MORNING FOR BP)
     Route: 048
     Dates: start: 20231013
  6. LANSOPRAZOLE [Concomitant]
     Active Substance: LANSOPRAZOLE
     Dosage: 1 DF, 1X/DAY (ONE TO BE TAKEN EACH MORNING)
     Route: 048
     Dates: start: 20231013
  7. METFORMIN [Concomitant]
     Active Substance: METFORMIN HYDROCHLORIDE
     Dosage: 1 DF, 1X/DAY (ONE TO BE TAKEN WITH BREAKFAST AS PER NURSE ADVICE)
     Route: 048
     Dates: start: 20240815
  8. ROSUVASTATIN [Concomitant]
     Active Substance: ROSUVASTATIN
     Dosage: 1 DF, 1X/DAY
     Route: 048
     Dates: start: 20240827

REACTIONS (3)
  - Myalgia [Recovered/Resolved]
  - Muscle spasms [Unknown]
  - Pain [Unknown]

NARRATIVE: CASE EVENT DATE: 20250501
